FAERS Safety Report 5213078-2 (Version None)
Quarter: 2007Q1

REPORT INFORMATION
  Report Type: 
  Country: None (occurrence: None)
  Receive Date: 20070119
  Receipt Date: 20070108
  Transmission Date: 20070707
  Serious: Yes (Other)
  Sender: FDA-Public Use
  Company Number: SE-ROCHE-477439

PATIENT
  Sex: Male

DRUGS (1)
  1. IKTORIVIL [Suspect]
     Indication: DRUG USE FOR UNKNOWN INDICATION
     Dosage: PATIENT TOOK ONLY TWO DOSES OF CLONAZEPAM 2 MG
     Route: 048
     Dates: start: 20070103, end: 20070103

REACTIONS (2)
  - LOSS OF CONSCIOUSNESS [None]
  - PERSONALITY CHANGE [None]
